FAERS Safety Report 8919788 (Version 2)
Quarter: 2012Q4

REPORT INFORMATION
  Report Type: 
  Country: JP (occurrence: JP)
  Receive Date: 20121121
  Receipt Date: 20121224
  Transmission Date: 20130627
  Serious: Yes (Death, Disabling)
  Sender: FDA-Public Use
  Company Number: JP-TEVA-2011003777

PATIENT
  Age: 76 Year
  Sex: Female
  Weight: 41.4 kg

DRUGS (1)
  1. BENDAMUSTINE HCL [Suspect]
     Indication: B-CELL LYMPHOMA
     Dosage: 120 mg/m2 Daily;
     Route: 042
     Dates: start: 20110418, end: 20110419

REACTIONS (3)
  - Myelodysplastic syndrome [Fatal]
  - Leukaemia [Fatal]
  - Subarachnoid haemorrhage [Fatal]
